FAERS Safety Report 19924426 (Version 3)
Quarter: 2021Q4

REPORT INFORMATION
  Report Type: Spontaneous
  Country: DE (occurrence: DE)
  Receive Date: 20211006
  Receipt Date: 20211018
  Transmission Date: 20220304
  Serious: Yes (Other)
  Sender: FDA-Public Use
  Company Number: DE-AMERICAN REGENT INC-2021002602

PATIENT
  Age: 45 Year
  Sex: Male

DRUGS (1)
  1. FERINJECT [Suspect]
     Active Substance: FERRIC CARBOXYMALTOSE
     Indication: Anaemia
     Dosage: 20 ML, RECEIVED ON MULTIPLE OCCASIONS (RECEIVED 16 INFUSIONS)
     Dates: start: 201908, end: 202107

REACTIONS (5)
  - Spinal fracture [Unknown]
  - Colitis ulcerative [Unknown]
  - Osteoporosis [Unknown]
  - Haemorrhoids [Unknown]
  - Hypophosphataemia [Unknown]

NARRATIVE: CASE EVENT DATE: 20210101
